FAERS Safety Report 23592440 (Version 1)
Quarter: 2024Q1

REPORT INFORMATION
  Report Type: Spontaneous
  Country: US (occurrence: None)
  Receive Date: 20240304
  Receipt Date: 20240304
  Transmission Date: 20240410
  Serious: Yes (Life-Threatening)
  Sender: FDA-Public Use
  Company Number: None

PATIENT
  Age: 59 Year
  Sex: Male

DRUGS (2)
  1. SILDENAFIL [Suspect]
     Active Substance: SILDENAFIL
     Indication: Product used for unknown indication
     Dosage: FREQUENCY : 3 TIMES A DAY;?
  2. CARVEDILOL [Suspect]
     Active Substance: CARVEDILOL

REACTIONS (4)
  - Cardiac arrest [None]
  - Hypotension [None]
  - Headache [None]
  - Blood pressure increased [None]
